FAERS Safety Report 8049477-3 (Version None)
Quarter: 2012Q1

REPORT INFORMATION
  Report Type: 
  Country: None (occurrence: None)
  Receive Date: 20120117
  Receipt Date: 20120103
  Transmission Date: 20120608
  Serious: Yes (Life-Threatening, Other)
  Sender: FDA-Public Use
  Company Number: AT-CELGENEUS-009-21880-11120662

PATIENT
  Age: 68 Year
  Sex: Male

DRUGS (4)
  1. REVLIMID [Suspect]
     Indication: MULTIPLE MYELOMA
     Dosage: 10 MILLIGRAM
     Route: 048
     Dates: start: 20100504, end: 20100515
  2. PANTOPRAZOLE [Concomitant]
     Route: 065
  3. CANDESARTAN CILEXETIL [Concomitant]
     Route: 065
  4. INSULATARD FLEX PEN [Concomitant]
     Route: 058

REACTIONS (1)
  - ADENOCARCINOMA PANCREAS [None]
